FAERS Safety Report 13353329 (Version 3)
Quarter: 2017Q1

REPORT INFORMATION
  Report Type: Spontaneous
  Country: EG (occurrence: EG)
  Receive Date: 20170321
  Receipt Date: 20170328
  Transmission Date: 20170429
  Serious: Yes (Other)
  Sender: FDA-Public Use
  Company Number: EG-009507513-1703EGY006634

PATIENT
  Age: 55 Year
  Sex: Female
  Weight: 65 kg

DRUGS (13)
  1. ROCURONIUM BROMIDE. [Interacting]
     Active Substance: ROCURONIUM BROMIDE
     Indication: ENDOTRACHEAL INTUBATION
     Dosage: 0.6 MG/KG, ONCE
     Route: 042
  2. MIDAZOLAM [Concomitant]
     Active Substance: MIDAZOLAM HYDROCHLORIDE
     Indication: INDUCTION OF ANAESTHESIA
     Dosage: 2 UG/KG, UNK
     Route: 042
  3. FENTANYL. [Concomitant]
     Active Substance: FENTANYL
     Indication: INDUCTION OF ANAESTHESIA
     Dosage: 2 MICROGRAM PER KILOGRAM AS INDUCE FOR GENERAL ANESTHESIA (BODY WEIGTH)
     Route: 042
  4. PROPOFOL. [Concomitant]
     Active Substance: PROPOFOL
     Dosage: 30 MG, UNK
     Route: 042
  5. ISOFLURANE. [Concomitant]
     Active Substance: ISOFLURANE
     Indication: ANAESTHESIA
     Dosage: 1.0?1.5% IN 40% OXYGEN-ENRICHED AIR
     Route: 055
  6. ISOFLURANE. [Concomitant]
     Active Substance: ISOFLURANE
     Dosage: 0.5% WAS RESTARTED
  7. AMLODIPINE [Concomitant]
     Active Substance: AMLODIPINE BESYLATE
     Indication: HYPERTENSION
     Dosage: 5MG ONCE DAILY
     Route: 048
  8. BUPIVACAINE. [Concomitant]
     Active Substance: BUPIVACAINE
     Dosage: 20 ML, UNK
  9. SIMVASTATIN. [Suspect]
     Active Substance: SIMVASTATIN
     Indication: HYPERCHOLESTEROLAEMIA
     Dosage: 40MG ONCE DAILY
     Route: 048
  10. CAPTOPRIL. [Concomitant]
     Active Substance: CAPTOPRIL
     Indication: HYPERTENSION
     Dosage: 25MG TWICE DAILY
     Route: 048
  11. PROPOFOL. [Concomitant]
     Active Substance: PROPOFOL
     Indication: INDUCTION OF ANAESTHESIA
     Dosage: 2 MG/KG, UNK
     Route: 042
  12. FENTANYL. [Concomitant]
     Active Substance: FENTANYL
     Dosage: 25 MICROGRAM BOLUSES TO MAINTAIN GENERAL ANESTHESIA
     Route: 042
  13. FENTANYL. [Concomitant]
     Active Substance: FENTANYL
     Dosage: 25 MICROGRAM, UNK
     Route: 042

REACTIONS (7)
  - Unresponsive to stimuli [Unknown]
  - Myopathy [Unknown]
  - Delayed recovery from anaesthesia [Unknown]
  - Potentiating drug interaction [Unknown]
  - Myalgia [Unknown]
  - Muscle disorder [Unknown]
  - Drug effect prolonged [Recovered/Resolved]
